FAERS Safety Report 17113775 (Version 1)
Quarter: 2019Q4

REPORT INFORMATION
  Report Type: Spontaneous
  Country: GB (occurrence: GB)
  Receive Date: 20191205
  Receipt Date: 20191205
  Transmission Date: 20200122
  Serious: Yes (Other)
  Sender: FDA-Public Use
  Company Number: GB-CELLTRION INC.-2019GB026934

PATIENT

DRUGS (3)
  1. AZATHIOPRINE. [Concomitant]
     Active Substance: AZATHIOPRINE
     Dosage: UNK
     Dates: start: 201710
  2. INFLIXIMAB PFIZER (UNKNOWN) [Suspect]
     Active Substance: INFLIXIMAB
     Dosage: 5 MG/KG, UNK
     Dates: start: 201704
  3. MESALAZINE [Concomitant]
     Active Substance: MESALAMINE
     Dosage: UNK
     Dates: start: 201710

REACTIONS (10)
  - Drug ineffective [Unknown]
  - Weight decreased [Unknown]
  - Iron deficiency anaemia [Unknown]
  - Platelet count increased [Unknown]
  - C-reactive protein increased [Unknown]
  - Haematochezia [Unknown]
  - Haemoglobin abnormal [Unknown]
  - Diarrhoea [Unknown]
  - Osteopenia [Unknown]
  - Abdominal discomfort [Unknown]

NARRATIVE: CASE EVENT DATE: 201707
